FAERS Safety Report 6611867-0 (Version None)
Quarter: 2010Q1

REPORT INFORMATION
  Report Type: 
  Country: None (occurrence: None)
  Receive Date: 20100303
  Receipt Date: 20100222
  Transmission Date: 20100710
  Serious: Yes (Hospitalization, Other)
  Sender: FDA-Public Use
  Company Number: JP-PFIZER INC-2010002812

PATIENT
  Age: 69 Year
  Sex: Male
  Weight: 70 kg

DRUGS (5)
  1. VIAGRA [Suspect]
     Dosage: 50 MG, UNK
  2. FLUTIDE [Concomitant]
     Indication: EMPHYSEMA
     Dosage: UNK
     Route: 055
     Dates: start: 20030221
  3. FLUTIDE [Concomitant]
     Indication: ASTHMA
  4. SEREVENT [Concomitant]
     Indication: EMPHYSEMA
     Dosage: UNK
     Route: 055
     Dates: start: 20041203
  5. SEREVENT [Concomitant]
     Indication: ASTHMA

REACTIONS (3)
  - HYDROCEPHALUS [None]
  - SUBARACHNOID HAEMORRHAGE [None]
  - URINARY INCONTINENCE [None]
